FAERS Safety Report 4562772-5 (Version None)
Quarter: 2005Q1

REPORT INFORMATION
  Report Type: 
  Country: None (occurrence: None)
  Receive Date: 20050121
  Receipt Date: 20050105
  Transmission Date: 20050727
  Serious: Yes (Other)
  Sender: FDA-Public Use
  Company Number: PHFR2003GB01536

PATIENT
  Age: 78 Year
  Sex: Female

DRUGS (9)
  1. CLOZARIL [Suspect]
     Indication: SCHIZOAFFECTIVE DISORDER
     Dosage: SEE IMAGE
     Route: 048
     Dates: end: 20030331
  2. CLOZARIL [Suspect]
     Indication: SCHIZOAFFECTIVE DISORDER
     Dosage: SEE IMAGE
     Route: 048
     Dates: start: 20030325
  3. DIAZEPAM [Suspect]
     Dosage: 1 MG, BID
  4. DIGOXIN [Concomitant]
  5. VENLAFAXINE HCL [Concomitant]
  6. ZOPICLONE (ZOPICLONE) [Concomitant]
  7. CO-DANTHRUSATE (DANTRON, DOCUSATE SODIUM) [Concomitant]
  8. SIMPLE LINCTUS (AMARANTH, ANISE WATER, CHLOROFORM SPIRIT, CITRIC ACID [Concomitant]
  9. ASPIRIN [Concomitant]

REACTIONS (7)
  - CEREBROVASCULAR ACCIDENT [None]
  - CIRCULATORY COLLAPSE [None]
  - DRUG INTERACTION [None]
  - HYPOTENSION [None]
  - RASH [None]
  - SOMNOLENCE [None]
  - TRANSIENT ISCHAEMIC ATTACK [None]
